FAERS Safety Report 7536236-0 (Version None)
Quarter: 2011Q2

REPORT INFORMATION
  Report Type: 
  Country: None (occurrence: None)
  Receive Date: 20110602
  Receipt Date: 20110523
  Transmission Date: 20111010
  Serious: Yes (Death, Other)
  Sender: FDA-Public Use
  Company Number: OMPQ-NO-1104S-0371

PATIENT
  Age: 14 Month
  Sex: Male

DRUGS (7)
  1. OMNIPAQUE 70 [Suspect]
     Indication: FALLOT'S TETRALOGY
     Dosage: 7 ML, SINGLE DOSE, INTRAVENOUS
     Route: 042
     Dates: start: 20110419, end: 20110419
  2. OMNIPAQUE 70 [Suspect]
     Indication: CARDIAC VENTRICULAR DISORDER
     Dosage: 7 ML, SINGLE DOSE, INTRAVENOUS
     Route: 042
     Dates: start: 20110419, end: 20110419
  3. KETAMINE HCL [Concomitant]
  4. AUGMENTIN DUO (SPEKTRAMOX) [Concomitant]
  5. GLYCOPYRROLATE [Concomitant]
  6. PROPOFOL [Concomitant]
  7. MIDAZOLAM (MIDAZOLAM) [Concomitant]

REACTIONS (7)
  - ACUTE RESPIRATORY FAILURE [None]
  - DEHYDRATION [None]
  - PYREXIA [None]
  - CHILLS [None]
  - DYSPNOEA [None]
  - TACHYCARDIA [None]
  - LOSS OF CONSCIOUSNESS [None]
